FAERS Safety Report 24655604 (Version 1)
Quarter: 2024Q4

REPORT INFORMATION
  Report Type: Spontaneous
  Country: NL (occurrence: NL)
  Receive Date: 20241123
  Receipt Date: 20241123
  Transmission Date: 20250114
  Serious: Yes (Hospitalization, Other)
  Sender: ACCORD
  Company Number: None

PATIENT
  Age: 82 Year
  Sex: Male
  Weight: 53.5 kg

DRUGS (2)
  1. METHOTREXATE [Suspect]
     Active Substance: METHOTREXATE
     Indication: Rheumatoid arthritis
     Dosage: STRENGTH:  2.5 MG?1 X PER WEEK 25 MG
     Dates: start: 20220315, end: 20240909
  2. PREDNISOLONE [Suspect]
     Active Substance: PREDNISOLONE
     Indication: Rheumatoid arthritis
     Dosage: STRENGTH: 5 MG?1 X PER DAY 1 PIECE
     Dates: start: 20220315

REACTIONS (3)
  - Pancytopenia [Not Recovered/Not Resolved]
  - Visceral leishmaniasis [Unknown]
  - Leukopenia [Not Recovered/Not Resolved]

NARRATIVE: CASE EVENT DATE: 20240909
